FAERS Safety Report 10510381 (Version 1)
Quarter: 2014Q4

REPORT INFORMATION
  Report Type: Spontaneous
  Country: US (occurrence: None)
  Receive Date: 20141009
  Receipt Date: 20141009
  Transmission Date: 20150528
  Serious: No
  Sender: FDA-Public Use
  Company Number: None

PATIENT
  Age: 66 Year
  Sex: Female
  Weight: 72.58 kg

DRUGS (1)
  1. LINZESS [Suspect]
     Active Substance: LINACLOTIDE
     Indication: IRRITABLE BOWEL SYNDROME
     Dosage: 10/07-10-10/2014 1 ONCE DAILY TAKEN BY MOUTH
     Route: 048

REACTIONS (7)
  - Diarrhoea [None]
  - Diarrhoea haemorrhagic [None]
  - Faeces discoloured [None]
  - Abdominal pain [None]
  - Muscle spasms [None]
  - Pain [None]
  - Mucous stools [None]

NARRATIVE: CASE EVENT DATE: 20141007
